FAERS Safety Report 4990660-9 (Version None)
Quarter: 2006Q2

REPORT INFORMATION
  Report Type: 
  Country: None (occurrence: None)
  Receive Date: 20060427
  Receipt Date: 20060419
  Transmission Date: 20061013
  Serious: Yes (Death, Other)
  Sender: FDA-Public Use
  Company Number: US-2006-009319

PATIENT
  Age: 73 Year
  Sex: Male
  Weight: 97.5 kg

DRUGS (13)
  1. MAGNEVIST [Suspect]
     Indication: ANGIOGRAM
     Dosage: 20 ML, 2 DOSES, INTRAVENOUS
     Route: 042
     Dates: start: 20060418, end: 20060418
  2. ASPIRIN [Concomitant]
  3. CALCIUM CARBONATE [Concomitant]
  4. DILTIAZEM [Concomitant]
  5. HYDROCHLOROTHIAZIDE [Concomitant]
  6. SYNTHROID [Concomitant]
  7. LOSARTAN POTASSIUM [Concomitant]
  8. NADOLOL [Concomitant]
  9. MULTIVITAMIN ^LAPPE^ (VITAMINS NOS) [Concomitant]
  10. DILANTIN  /AUS/(PHENYTOIN SODIUM) [Concomitant]
  11. RANITIDINE [Concomitant]
  12. TERAZOSIN (TERAZOSIN) [Concomitant]
  13. CLONIDINE [Concomitant]

REACTIONS (6)
  - BRONCHOSPASM [None]
  - CARDIO-RESPIRATORY ARREST [None]
  - PROCEDURAL COMPLICATION [None]
  - SWELLING FACE [None]
  - SWOLLEN TONGUE [None]
  - VENTRICULAR FIBRILLATION [None]
